FAERS Safety Report 10248358 (Version 1)
Quarter: 2014Q2

REPORT INFORMATION
  Report Type: Spontaneous
  Country: US (occurrence: US)
  Receive Date: 20140620
  Receipt Date: 20140620
  Transmission Date: 20141212
  Serious: No
  Sender: FDA-Public Use
  Company Number: US-ASTRAZENECA-2014SE40643

PATIENT
  Age: 57 Year
  Sex: Female
  Weight: 63.5 kg

DRUGS (5)
  1. NEXIUM [Suspect]
     Indication: GASTROOESOPHAGEAL REFLUX DISEASE
     Dosage: UNKNOWN DAILY
     Route: 048
     Dates: end: 2005
  2. NEXIUM OTC [Suspect]
     Indication: GASTROOESOPHAGEAL REFLUX DISEASE
     Route: 048
     Dates: start: 201405
  3. METOPROLOL TARTRATE [Suspect]
     Indication: BLOOD PRESSURE
     Route: 048
  4. METOPROLOL TARTRATE [Suspect]
     Indication: MIGRAINE
     Route: 048
  5. PROZAC [Concomitant]
     Indication: DEPRESSION
     Route: 048
     Dates: start: 1999

REACTIONS (3)
  - Hypertension [Unknown]
  - Drug ineffective [Unknown]
  - Intentional product misuse [Unknown]
